FAERS Safety Report 5347786-X (Version None)
Quarter: 2007Q2

REPORT INFORMATION
  Report Type: 
  Country: None (occurrence: None)
  Receive Date: 20070516
  Receipt Date: 20070202
  Transmission Date: 20071010
  Serious: No
  Sender: FDA-Public Use
  Company Number: SPV1-2007-00541

PATIENT
  Age: 82 Year
  Sex: Female
  Weight: 60.8 kg

DRUGS (5)
  1. FOSRENOL [Suspect]
     Indication: HYPERPHOSPHATAEMIA
     Dosage: 1000 MG, 3X/DAY;TID, ORAL
     Route: 048
     Dates: start: 20060701
  2. DIOVAN HCT [Concomitant]
  3. LIPITOR [Concomitant]
  4. RENA-VITE [Concomitant]
  5. NORVASC [Concomitant]

REACTIONS (1)
  - TOOTH INJURY [None]
